FAERS Safety Report 15349769 (Version 1)
Quarter: 2018Q3

REPORT INFORMATION
  Report Type: Report from Study
  Country: None (occurrence: AU)
  Receive Date: 20180904
  Receipt Date: 20180904
  Transmission Date: 20181010
  Serious: Yes (Death)
  Sender: FDA-Public Use
  Company Number: AU-ABBVIE-18P-008-2474315-00

PATIENT
  Age: 75 Year
  Sex: Male

DRUGS (6)
  1. IBRUTINIB [Suspect]
     Active Substance: IBRUTINIB
     Indication: MANTLE CELL LYMPHOMA
     Route: 048
     Dates: start: 20160106, end: 20180829
  2. NEXIUM [Concomitant]
     Active Substance: ESOMEPRAZOLE MAGNESIUM
     Indication: PROPHYLAXIS
     Route: 048
     Dates: start: 20170802
  3. PARACETAMOL [Concomitant]
     Active Substance: ACETAMINOPHEN
     Indication: PAIN
     Route: 048
     Dates: start: 20050615
  4. VENETOCLAX. [Suspect]
     Active Substance: VENETOCLAX
     Indication: MANTLE CELL LYMPHOMA
     Route: 048
     Dates: start: 20160127, end: 20180829
  5. G?SSF [Concomitant]
     Indication: PANCYTOPENIA
     Route: 058
     Dates: start: 20160613
  6. CLONAZEPAM. [Concomitant]
     Active Substance: CLONAZEPAM
     Indication: MUSCULOSKELETAL DISORDER
     Route: 048
     Dates: start: 19950615

REACTIONS (1)
  - Lung infection [Fatal]

NARRATIVE: CASE EVENT DATE: 20180830
